FAERS Safety Report 9247489 (Version 1)
Quarter: 2013Q2

REPORT INFORMATION
  Report Type: Spontaneous
  Country: US (occurrence: US)
  Receive Date: 20130423
  Receipt Date: 20130423
  Transmission Date: 20140414
  Serious: Yes (Other)
  Sender: FDA-Public Use
  Company Number: US-ASTELLAS-2013US004171

PATIENT
  Sex: Female

DRUGS (2)
  1. VESICARE [Suspect]
     Indication: URINARY ANASTOMOTIC LEAK
     Dosage: 5 MG, UID/QD
     Route: 048
     Dates: start: 2012
  2. VESICARE [Suspect]
     Dosage: 5 MG, UID/QD
     Route: 048
     Dates: start: 2010, end: 2012

REACTIONS (2)
  - Drug ineffective [Unknown]
  - Knee deformity [Unknown]
